FAERS Safety Report 7148039-X (Version None)
Quarter: 2010Q4

REPORT INFORMATION
  Report Type: 
  Country: None (occurrence: None)
  Receive Date: 20101209
  Receipt Date: 20101201
  Transmission Date: 20110411
  Serious: Yes (Hospitalization, Other)
  Sender: FDA-Public Use
  Company Number: US-JNJFOC-20101002334

PATIENT
  Sex: Male
  Weight: 93.44 kg

DRUGS (2)
  1. DURAGESIC-100 [Suspect]
     Indication: PAIN
     Route: 062
  2. DURAGESIC-100 [Suspect]
     Dosage: NDC#5045809205
     Route: 062

REACTIONS (5)
  - ANGINA PECTORIS [None]
  - MYOCARDIAL INFARCTION [None]
  - PRODUCT ADHESION ISSUE [None]
  - SEBORRHOEA [None]
  - WRONG TECHNIQUE IN DRUG USAGE PROCESS [None]
